FAERS Safety Report 9218134 (Version 1)
Quarter: 2013Q2

REPORT INFORMATION
  Report Type: Spontaneous
  Country: US (occurrence: US)
  Receive Date: 20130408
  Receipt Date: 20130408
  Transmission Date: 20140414
  Serious: Yes (Death, Hospitalization)
  Sender: FDA-Public Use
  Company Number: US-BAXTER-2013BAX011507

PATIENT
  Age: 71 Year
  Sex: Male

DRUGS (1)
  1. DIANEAL LOW CALCIUM [Suspect]
     Indication: PERITONEAL DIALYSIS
     Route: 033
     Dates: end: 20130326

REACTIONS (4)
  - General physical health deterioration [Fatal]
  - Therapy cessation [Fatal]
  - Transient ischaemic attack [Not Recovered/Not Resolved]
  - Abasia [Not Recovered/Not Resolved]
